FAERS Safety Report 21991462 (Version 2)
Quarter: 2023Q1

REPORT INFORMATION
  Report Type: Spontaneous
  Country: US (occurrence: US)
  Receive Date: 20230214
  Receipt Date: 20230214
  Transmission Date: 20230418
  Serious: No
  Sender: FDA-Public Use
  Company Number: US-PFIZER INC-PV202200119553

PATIENT
  Age: 55 Year

DRUGS (5)
  1. NURTEC ODT [Suspect]
     Active Substance: RIMEGEPANT SULFATE
     Dosage: UNK
     Dates: start: 20221129
  2. CLONIDINE [Concomitant]
     Active Substance: CLONIDINE
     Dosage: UNK
  3. DILTIAZEM [Concomitant]
     Active Substance: DILTIAZEM
     Dosage: UNK
  4. ELIQUIS [Concomitant]
     Active Substance: APIXABAN
     Dosage: UNK
  5. METOPROLOL [Concomitant]
     Active Substance: METOPROLOL
     Dosage: UNK

REACTIONS (4)
  - Headache [Recovered/Resolved]
  - Muscle twitching [Recovered/Resolved]
  - Eye pain [Unknown]
  - Nausea [Unknown]

NARRATIVE: CASE EVENT DATE: 20221130
